FAERS Safety Report 7875685-8 (Version None)
Quarter: 2011Q4

REPORT INFORMATION
  Report Type: 
  Country: None (occurrence: None)
  Receive Date: 20111031
  Receipt Date: 20111024
  Transmission Date: 20120403
  Serious: Yes (Other)
  Sender: FDA-Public Use
  Company Number: JP-JNJFOC-20111007865

PATIENT
  Age: 36 Year
  Sex: Male

DRUGS (5)
  1. RISPERDAL [Suspect]
     Dosage: 9-11 MG
     Route: 048
  2. PHENOBARBITAL TAB [Suspect]
     Indication: INSOMNIA
     Route: 048
  3. RISPERDAL [Suspect]
     Dosage: 9 TABLETS
     Route: 048
  4. RISPERDAL [Suspect]
     Indication: SCHIZOPHRENIA
     Dosage: 1 TABLET
     Route: 048
  5. BROTIZOLAM [Suspect]
     Indication: INSOMNIA
     Route: 048

REACTIONS (4)
  - INTENTIONAL DRUG MISUSE [None]
  - TREMOR [None]
  - AKATHISIA [None]
  - ABNORMAL BEHAVIOUR [None]
